FAERS Safety Report 15988964 (Version 3)
Quarter: 2020Q3

REPORT INFORMATION
  Report Type: Report from Study
  Country: FR (occurrence: FR)
  Receive Date: 20190221
  Receipt Date: 20190705
  Transmission Date: 20201104
  Serious: Yes (Hospitalization)
  Sender: FDA-Public Use
  Company Number: FR-ROCHE-2253007

PATIENT
  Age: 39 Year
  Sex: Female
  Weight: 41 kg

DRUGS (14)
  1. PRIMPERAN [Concomitant]
     Active Substance: METOCLOPRAMIDE HYDROCHLORIDE
     Indication: PROPHYLAXIS OF NAUSEA AND VOMITING
     Route: 048
     Dates: start: 20181110
  2. LIDOCAINE/PRILOCAINE [Concomitant]
     Active Substance: LIDOCAINE\PRILOCAINE
     Indication: PROPHYLAXIS
     Dosage: 1 OTHER
     Route: 062
     Dates: start: 20181102
  3. ATEZOLIZUMAB. [Suspect]
     Active Substance: ATEZOLIZUMAB
     Indication: TRIPLE NEGATIVE BREAST CANCER
     Dosage: ON DAYS 1 AND 15 OF EACH 28 DAY CYCLE. DATE OF MOST RECENT DOSE PRIOR TO EVENT: 11/JAN/2019 AT 11.10
     Route: 042
     Dates: start: 20181102
  4. ALPRAZOLAM. [Concomitant]
     Active Substance: ALPRAZOLAM
     Indication: ANXIETY
     Route: 048
     Dates: start: 20190124
  5. ONDANSETRON [Concomitant]
     Active Substance: ONDANSETRON
     Indication: PROPHYLAXIS
     Route: 042
     Dates: start: 20181102, end: 20190111
  6. OXYCODONE [Concomitant]
     Active Substance: OXYCODONE
     Indication: TUMOUR PAIN
     Route: 048
     Dates: start: 20181029
  7. LYRICA [Concomitant]
     Active Substance: PREGABALIN
     Indication: TUMOUR PAIN
     Route: 048
     Dates: start: 20181102, end: 20190201
  8. IPATASERTIB. [Suspect]
     Active Substance: IPATASERTIB
     Indication: TRIPLE NEGATIVE BREAST CANCER
     Dosage: (FREQUENCY AS PER PROTOCOL)ON DAYS 1?21 OF EACH 28 DAY CYCLE. DATE OF MOST RECENT DOSE ON 17/JAN/201
     Route: 048
     Dates: start: 20181102
  9. LYRICA [Concomitant]
     Active Substance: PREGABALIN
     Route: 048
     Dates: start: 20190202
  10. VERSATIS [Concomitant]
     Active Substance: LIDOCAINE
     Indication: TUMOUR PAIN
     Dosage: 1 OTHER
     Route: 062
     Dates: start: 20190202
  11. NAB?PACLITAXEL [Suspect]
     Active Substance: PACLITAXEL
     Indication: TRIPLE NEGATIVE BREAST CANCER
     Dosage: ON DAYS 1, 8, AND 15 OF EACH 28 DAY CYCLE. DATE OF MOST RECENT DOSE PRIOR TO EVENT: 11/JAN/2019 AT 1
     Route: 042
     Dates: start: 20181102
  12. CHOLECALCIFEROL [Concomitant]
     Active Substance: CHOLECALCIFEROL
     Indication: PROPHYLAXIS
     Route: 048
     Dates: start: 20181207
  13. OXYNORMORO [Concomitant]
     Active Substance: OXYCODONE HYDROCHLORIDE
     Indication: TUMOUR PAIN
     Route: 048
     Dates: start: 20190125
  14. ELUDRILPERIO [Concomitant]
     Active Substance: CHLORHEXIDINE GLUCONATE
     Indication: TOOTH INFECTION
     Dosage: 1 PUFF
     Route: 061
     Dates: start: 20190204, end: 20190209

REACTIONS (2)
  - Pyrexia [Recovered/Resolved]
  - Interstitial lung disease [Recovered/Resolved]

NARRATIVE: CASE EVENT DATE: 20190117
